FAERS Safety Report 10172856 (Version 2)
Quarter: 2014Q2

REPORT INFORMATION
  Report Type: Spontaneous
  Country: FR (occurrence: FR)
  Receive Date: 20140515
  Receipt Date: 20140523
  Transmission Date: 20141212
  Serious: Yes (Hospitalization)
  Sender: FDA-Public Use
  Company Number: FR-GLAXOSMITHKLINE-B0993158A

PATIENT
  Age: 63 Year
  Sex: Female

DRUGS (8)
  1. ALKERAN [Suspect]
     Indication: PRODUCT USED FOR UNKNOWN INDICATION
     Route: 042
     Dates: start: 20130402, end: 2013
  2. ZELITREX [Suspect]
     Indication: VIRAL INFECTION
     Route: 048
     Dates: start: 201304, end: 20130417
  3. COAPROVEL [Suspect]
     Indication: HYPERTENSION
     Route: 048
     Dates: end: 20140417
  4. VANCOMYCIN [Suspect]
     Indication: PRODUCT USED FOR UNKNOWN INDICATION
     Route: 042
     Dates: start: 20130415, end: 20130417
  5. PIPERACILLIN + TAZOBACTAM [Concomitant]
     Route: 042
     Dates: start: 20130414
  6. KARDEGIC [Concomitant]
     Route: 048
  7. TAHOR [Concomitant]
     Route: 048
  8. INEXIUM [Concomitant]
     Route: 048

REACTIONS (1)
  - Renal failure acute [Recovering/Resolving]
